FAERS Safety Report 21311592 (Version 1)
Quarter: 2022Q3

REPORT INFORMATION
  Report Type: Spontaneous
  Country: US (occurrence: None)
  Receive Date: 20220909
  Receipt Date: 20220909
  Transmission Date: 20221027
  Serious: Yes (Hospitalization)
  Sender: FDA-Public Use
  Company Number: None

PATIENT
  Age: 53 Year
  Sex: Male
  Weight: 52 kg

DRUGS (2)
  1. ERBITUX [Suspect]
     Active Substance: CETUXIMAB
     Dates: end: 20150113
  2. TAXOTERE [Concomitant]
     Active Substance: DOCETAXEL
     Dates: end: 20150113

REACTIONS (2)
  - Gram stain positive [None]
  - Pneumonia aspiration [None]

NARRATIVE: CASE EVENT DATE: 20220904
